FAERS Safety Report 18124055 (Version 5)
Quarter: 2021Q1

REPORT INFORMATION
  Report Type: Report from Study
  Country: US (occurrence: US)
  Receive Date: 20200807
  Receipt Date: 20210122
  Transmission Date: 20210419
  Serious: Yes (Other)
  Sender: FDA-Public Use
  Company Number: US-AGIOS-2007US02062

PATIENT

DRUGS (1)
  1. TIBSOVO [Suspect]
     Active Substance: IVOSIDENIB
     Indication: ACUTE MYELOID LEUKAEMIA
     Dosage: 250MG, 2 TABLETS (500MG) DAILY
     Route: 048
     Dates: start: 20200408

REACTIONS (12)
  - Dry skin [Not Recovered/Not Resolved]
  - Malaise [Unknown]
  - Bradykinesia [Unknown]
  - Metastasis [Unknown]
  - Product use complaint [Unknown]
  - Product dose omission issue [Recovered/Resolved]
  - Off label use [Unknown]
  - Abdominal discomfort [Unknown]
  - Pain in extremity [Unknown]
  - Malignant neoplasm progression [Not Recovered/Not Resolved]
  - Femur fracture [Unknown]
  - Nausea [Unknown]

NARRATIVE: CASE EVENT DATE: 20201022
